FAERS Safety Report 23637228 (Version 1)
Quarter: 2024Q1

REPORT INFORMATION
  Report Type: Spontaneous
  Country: BR (occurrence: BR)
  Receive Date: 20240315
  Receipt Date: 20240315
  Transmission Date: 20240410
  Serious: Yes (Hospitalization)
  Sender: FDA-Public Use
  Company Number: BR-JNJFOC-20240272839

PATIENT
  Sex: Female

DRUGS (4)
  1. LENALIDOMIDE [Suspect]
     Active Substance: LENALIDOMIDE
     Indication: Plasma cell myeloma
     Dosage: LAST DOSE APPLICATION DATE WAS ON 19-FEB-2024
     Route: 048
     Dates: start: 20200716, end: 20240219
  2. DARATUMUMAB [Concomitant]
     Active Substance: DARATUMUMAB
     Indication: Plasma cell myeloma
     Dosage: LAST DRUG APPLICATION DATE : 19-FEB-2024
     Route: 058
     Dates: start: 20190716, end: 20240219
  3. BORTEZOMIB [Concomitant]
     Active Substance: BORTEZOMIB
     Indication: Plasma cell myeloma
     Dosage: LAST DRUG APPLICATION DATE WAS ON 07-JAN-2020
     Route: 058
     Dates: start: 20200716
  4. DEXAMETHASONE [Concomitant]
     Active Substance: DEXAMETHASONE
     Indication: Plasma cell myeloma
     Dosage: LAST DOSE APPLICATION DATE WAS ON 19-FEB-2024, INTERRUPTED THE DOSE ON 01-MAR-2024
     Route: 048
     Dates: start: 20200720, end: 20240219

REACTIONS (1)
  - COVID-19 [Recovering/Resolving]

NARRATIVE: CASE EVENT DATE: 20240222
